FAERS Safety Report 8341966-7 (Version None)
Quarter: 2012Q2

REPORT INFORMATION
  Report Type: 
  Country: None (occurrence: None)
  Receive Date: 20120507
  Receipt Date: 20120426
  Transmission Date: 20120825
  Serious: Yes (Congenital Anomaly)
  Sender: FDA-Public Use
  Company Number: TR-FRI-1000030270

PATIENT

DRUGS (4)
  1. XANAX [Suspect]
     Route: 064
  2. ESCITALOPRAM [Suspect]
     Dosage: 10 MG
     Route: 064
  3. TRANKOBUSKAS [Suspect]
     Route: 064
  4. REMERON [Suspect]
     Route: 064

REACTIONS (1)
  - CONGENITAL MUSCULOSKELETAL ANOMALY [None]
